FAERS Safety Report 18648172 (Version 3)
Quarter: 2021Q2

REPORT INFORMATION
  Report Type: Other
  Country: US (occurrence: US)
  Receive Date: 20201222
  Receipt Date: 20210401
  Transmission Date: 20210717
  Serious: Yes (Other)
  Sender: FDA-Public Use
  Company Number: US-ROCHE-2638915

PATIENT
  Sex: Female
  Weight: 68.55 kg

DRUGS (24)
  1. FOSAMAX [Concomitant]
     Active Substance: ALENDRONATE SODIUM
     Route: 048
  2. WELLBUTRIN SR [Concomitant]
     Active Substance: BUPROPION HYDROCHLORIDE
     Route: 048
  3. LOMOTIL [Concomitant]
     Active Substance: ATROPINE SULFATE\DIPHENOXYLATE HYDROCHLORIDE
     Dosage: 2.5 MG ? 0.025 MG
     Route: 048
  4. PLAQUENIL [Concomitant]
     Active Substance: HYDROXYCHLOROQUINE SULFATE
     Indication: RHEUMATOID ARTHRITIS
  5. ROBAXIN [Concomitant]
     Active Substance: METHOCARBAMOL
     Dosage: 2 TO 3 TIMES DAILY
     Route: 048
  6. ACTEMRA [Suspect]
     Active Substance: TOCILIZUMAB
     Indication: RHEUMATOID ARTHRITIS
     Route: 058
  7. ACTEMRA [Suspect]
     Active Substance: TOCILIZUMAB
     Dosage: INJECTION
     Route: 058
     Dates: start: 202009
  8. METHOTREXATE. [Concomitant]
     Active Substance: METHOTREXATE
     Indication: RHEUMATOID ARTHRITIS
     Dosage: FOUR 10 MG TABLETS ONCE A WEEK
     Route: 048
     Dates: start: 202101
  9. TYLENOL WITH CODEINE [Concomitant]
     Active Substance: ACETAMINOPHEN\CODEINE PHOSPHATE
     Indication: PAIN
     Dosage: 300?30 MG
     Route: 048
  10. VOLTAREN [Concomitant]
     Active Substance: DICLOFENAC SODIUM
     Route: 061
  11. FLONASE [Concomitant]
     Active Substance: FLUTICASONE PROPIONATE
     Dosage: 2 SPRAY
     Route: 045
  12. FOLVITE [Concomitant]
     Active Substance: FOLIC ACID
     Route: 048
  13. PLAQUENIL [Concomitant]
     Active Substance: HYDROXYCHLOROQUINE SULFATE
     Route: 048
     Dates: start: 202101
  14. MOBIC [Concomitant]
     Active Substance: MELOXICAM
     Route: 048
  15. RHEUMATREX [Concomitant]
     Active Substance: METHOTREXATE SODIUM
     Route: 048
  16. DRISDOL [Concomitant]
     Active Substance: ERGOCALCIFEROL
     Dosage: 50000 UNIT
     Route: 048
  17. ACTEMRA [Suspect]
     Active Substance: TOCILIZUMAB
     Indication: RHEUMATOID ARTHRITIS
     Route: 058
  18. MYRBETRIQ [Concomitant]
     Active Substance: MIRABEGRON
     Route: 048
  19. ACTEMRA [Suspect]
     Active Substance: TOCILIZUMAB
     Dosage: INJECTION
     Route: 058
     Dates: end: 202009
  20. NEURONTIN [Concomitant]
     Active Substance: GABAPENTIN
     Route: 048
  21. AVAPRO [Concomitant]
     Active Substance: IRBESARTAN
     Dosage: NIGHT
     Route: 048
  22. COZAAR [Concomitant]
     Active Substance: LOSARTAN POTASSIUM
     Route: 048
  23. ULTRAM [Concomitant]
     Active Substance: TRAMADOL HYDROCHLORIDE
     Indication: PAIN
     Route: 048
  24. FOLIC ACID. [Concomitant]
     Active Substance: FOLIC ACID
     Indication: RHEUMATOID ARTHRITIS
     Route: 048
     Dates: start: 202101

REACTIONS (10)
  - Pain [Not Recovered/Not Resolved]
  - Fall [Unknown]
  - Knee arthroplasty [Unknown]
  - White blood cell count decreased [Recovered/Resolved]
  - Tibia fracture [Unknown]
  - Limb operation [Unknown]
  - Anaemia [Unknown]
  - Exposure to SARS-CoV-2 [Unknown]
  - Off label use [Unknown]
  - Wheelchair user [Unknown]
